FAERS Safety Report 7940963-0 (Version None)
Quarter: 2011Q4

REPORT INFORMATION
  Report Type: 
  Country: None (occurrence: None)
  Receive Date: 20111128
  Receipt Date: 20111118
  Transmission Date: 20120403
  Serious: Yes (Death, Hospitalization)
  Sender: FDA-Public Use
  Company Number: PHHO2011IN17935

PATIENT
  Sex: Male

DRUGS (10)
  1. FOLVITE [Concomitant]
     Dosage: UNK
     Dates: start: 20070617
  2. DILZEM [Concomitant]
     Dosage: UNK
     Dates: start: 20070617
  3. PANTOPRAZOLE [Concomitant]
     Dosage: UNK
     Dates: start: 20111025
  4. MYCOPHENOLATE MOFETIL [Suspect]
     Indication: RENAL TRANSPLANT
     Dosage: UNK
     Route: 048
     Dates: end: 20111024
  5. AZATHIOPRINE [Concomitant]
     Dosage: UNK
     Dates: start: 20111101
  6. DEFLAZACORT [Concomitant]
     Dosage: UNK
     Dates: start: 20071217
  7. NEORAL [Suspect]
     Indication: RENAL TRANSPLANT
     Dosage: 75 MG, UNK
     Route: 048
     Dates: start: 20070605, end: 20111107
  8. PANTOCID (PANTOPRAZOLE SODIUM) [Concomitant]
     Dosage: UNK
     Dates: start: 20070617
  9. ARKAMIN [Concomitant]
     Dosage: UNK
     Dates: start: 20070627, end: 20111010
  10. ATENOLOL [Concomitant]
     Dosage: UNK
     Dates: start: 20070617, end: 20111010

REACTIONS (7)
  - WEIGHT DECREASED [None]
  - DIARRHOEA [None]
  - CYTOMEGALOVIRUS INFECTION [None]
  - CARDIO-RESPIRATORY ARREST [None]
  - PNEUMONIA [None]
  - SEPSIS [None]
  - SEPTIC SHOCK [None]
